FAERS Safety Report 7349345-6 (Version None)
Quarter: 2011Q1

REPORT INFORMATION
  Report Type: 
  Country: None (occurrence: None)
  Receive Date: 20110303
  Receipt Date: 20110215
  Transmission Date: 20110831
  Serious: Yes (Hospitalization)
  Sender: FDA-Public Use
  Company Number: 2011SP008810

PATIENT
  Age: 34 Year
  Sex: Male

DRUGS (7)
  1. OXCARBAZEPINE [Concomitant]
  2. SEROQUEL [Concomitant]
  3. LITHIUM [Concomitant]
  4. DOXEPIN [Concomitant]
  5. SAPHRIS [Suspect]
     Indication: BIPOLAR DISORDER
     Dates: start: 20110101
  6. SYNTHROID [Concomitant]
  7. LAMOTRIGINE [Concomitant]

REACTIONS (2)
  - BIPOLAR DISORDER [None]
  - CONDITION AGGRAVATED [None]
